FAERS Safety Report 4921302-6 (Version None)
Quarter: 2006Q1

REPORT INFORMATION
  Report Type: 
  Country: None (occurrence: None)
  Receive Date: 20060224
  Receipt Date: 20021226
  Transmission Date: 20060701
  Serious: Yes (Other)
  Sender: FDA-Public Use
  Company Number: US-BRISTOL-MYERS SQUIBB COMPANY-12145132

PATIENT
  Age: 60 Year
  Sex: Male
  Weight: 75 kg

DRUGS (1)
  1. LIPEMOL TABS 20 MG [Suspect]
     Indication: HYPERCHOLESTEROLAEMIA
     Dosage: - DOSE REDUCED TO 20 MG EVERY OTHER DAY DUE TO EVENT
     Route: 048
     Dates: start: 20010820

REACTIONS (2)
  - ERECTILE DYSFUNCTION [None]
  - MYALGIA [None]
